APPROVED DRUG PRODUCT: LEVOCETIRIZINE DIHYDROCHLORIDE
Active Ingredient: LEVOCETIRIZINE DIHYDROCHLORIDE
Strength: 5MG
Dosage Form/Route: TABLET;ORAL
Application: A090486 | Product #001
Applicant: GRANULES INDIA LTD
Approved: Mar 26, 2013 | RLD: No | RS: No | Type: DISCN